FAERS Safety Report 17601805 (Version 1)
Quarter: 2020Q1

REPORT INFORMATION
  Report Type: Spontaneous
  Country: US (occurrence: US)
  Receive Date: 20200330
  Receipt Date: 20200330
  Transmission Date: 20200409
  Serious: No
  Sender: FDA-Public Use
  Company Number: US-TEVA-2020-US-1212678

PATIENT
  Sex: Female

DRUGS (2)
  1. CLONAZEPAM TEVA TABLET [Suspect]
     Active Substance: CLONAZEPAM
     Indication: OESOPHAGEAL SPASM
     Route: 065
  2. CLONAZEPAM TEVA TABLET [Suspect]
     Active Substance: CLONAZEPAM
     Indication: EXTRAOCULAR MUSCLE PARESIS
     Route: 065

REACTIONS (3)
  - Product prescribing error [Unknown]
  - Therapeutic product effect incomplete [Unknown]
  - Product use in unapproved indication [Unknown]
